FAERS Safety Report 8269062-8 (Version None)
Quarter: 2012Q2

REPORT INFORMATION
  Report Type: 
  Country: None (occurrence: None)
  Receive Date: 20120409
  Receipt Date: 20120406
  Transmission Date: 20120825
  Serious: Yes (Hospitalization, Other)
  Sender: FDA-Public Use
  Company Number: US-PFIZER INC-2012011039

PATIENT
  Sex: Female

DRUGS (1)
  1. CHANTIX [Suspect]
     Indication: SMOKING CESSATION THERAPY
     Dosage: FOR TWELVE WEEKS
     Route: 048
     Dates: start: 20080101

REACTIONS (7)
  - MALAISE [None]
  - ACCIDENT [None]
  - NERVOUSNESS [None]
  - FRACTURE [None]
  - CERVICAL VERTEBRAL FRACTURE [None]
  - PAIN [None]
  - DEPRESSED MOOD [None]
